FAERS Safety Report 4939385-6 (Version None)
Quarter: 2006Q1

REPORT INFORMATION
  Report Type: 
  Country: None (occurrence: None)
  Receive Date: 20060306
  Receipt Date: 20060222
  Transmission Date: 20060701
  Serious: No
  Sender: FDA-Public Use
  Company Number: 06H-035-0305909-00

PATIENT
  Sex: Male

DRUGS (1)
  1. PENTOTHAL [Suspect]
     Indication: CONVULSION
     Dosage: SEE IMAGE

REACTIONS (3)
  - CONVULSION [None]
  - HYPOTENSION [None]
  - ILEUS [None]
